FAERS Safety Report 5934195-5 (Version None)
Quarter: 2008Q4

REPORT INFORMATION
  Report Type: 
  Country: None (occurrence: None)
  Receive Date: 20081027
  Receipt Date: 20081014
  Transmission Date: 20090506
  Serious: Yes (Death)
  Sender: FDA-Public Use
  Company Number: 230568K08USA

PATIENT
  Age: 55 Year
  Sex: Female

DRUGS (5)
  1. REBIF [Suspect]
     Indication: MULTIPLE SCLEROSIS
     Dosage: 44 MCG, 3 IN 1 WEEKS, SUBCUTANEOUS
     Route: 058
     Dates: start: 20070122, end: 20080726
  2. MOBIC [Concomitant]
  3. LYRICA [Concomitant]
  4. LEXAPRO (ECITALOPRAM OXALATE) [Concomitant]
  5. MICARDIS [Concomitant]

REACTIONS (1)
  - MYOCARDIAL INFARCTION [None]
